FAERS Safety Report 11335687 (Version 2)
Quarter: 2015Q4

REPORT INFORMATION
  Report Type: Spontaneous
  Country: US (occurrence: US)
  Receive Date: 20150804
  Receipt Date: 20151106
  Transmission Date: 20160304
  Serious: Yes (Death, Other)
  Sender: FDA-Public Use
  Company Number: US-ASTRAZENECA-2013SE77092

PATIENT
  Age: 19759 Day
  Sex: Male

DRUGS (12)
  1. BYETTA [Suspect]
     Active Substance: EXENATIDE
     Indication: TYPE 2 DIABETES MELLITUS
     Route: 065
     Dates: start: 20100716, end: 201104
  2. EMEND [Concomitant]
     Active Substance: APREPITANT
     Route: 065
  3. LISINOPRIL+ HCTZ [Concomitant]
     Route: 048
  4. MULTIVITAMINS [Concomitant]
     Active Substance: VITAMINS
     Route: 048
  5. AMBIEN [Concomitant]
     Active Substance: ZOLPIDEM TARTRATE
     Route: 048
  6. LEVEMIR [Concomitant]
     Active Substance: INSULIN DETEMIR
  7. NOVOLOG [Concomitant]
     Active Substance: INSULIN ASPART
     Route: 058
  8. PRILOSEC [Concomitant]
     Active Substance: OMEPRAZOLE MAGNESIUM
     Route: 048
  9. ADVIL [Concomitant]
     Active Substance: IBUPROFEN
     Route: 048
  10. ATIVAN [Concomitant]
     Active Substance: LORAZEPAM
     Route: 048
  11. PROCHLORPERAZINE MALEATE. [Concomitant]
     Active Substance: PROCHLORPERAZINE MALEATE
     Route: 048
  12. VICODIN ES [Concomitant]
     Active Substance: ACETAMINOPHEN\HYDROCODONE BITARTRATE
     Route: 048

REACTIONS (4)
  - Pancreatic carcinoma metastatic [Fatal]
  - Ascites [Unknown]
  - Metastases to liver [Unknown]
  - Metastases to spleen [Unknown]

NARRATIVE: CASE EVENT DATE: 20110330
